FAERS Safety Report 10473846 (Version 1)
Quarter: 2014Q3

REPORT INFORMATION
  Report Type: Spontaneous
  Country: JP (occurrence: JP)
  Receive Date: 20140924
  Receipt Date: 20140924
  Transmission Date: 20150326
  Serious: Yes (Other)
  Sender: FDA-Public Use
  Company Number: PHHY2014JP110083

PATIENT
  Age: 77 Year
  Sex: Male

DRUGS (1)
  1. NEORAL [Suspect]
     Active Substance: CYCLOSPORINE
     Indication: DERMATITIS ATOPIC
     Route: 048

REACTIONS (5)
  - Memory impairment [Recovering/Resolving]
  - Central nervous system lesion [Recovering/Resolving]
  - Cognitive disorder [Unknown]
  - Cerebral amyloid angiopathy [Unknown]
  - Irritability [Unknown]
